FAERS Safety Report 25997151 (Version 3)
Quarter: 2025Q4

REPORT INFORMATION
  Report Type: Spontaneous
  Country: US (occurrence: US)
  Receive Date: 20251104
  Receipt Date: 20251127
  Transmission Date: 20260117
  Serious: No
  Sender: JOHNSON AND JOHNSON
  Company Number: US-JNJFOC-20251019805

PATIENT
  Age: 21 Year
  Sex: Female

DRUGS (2)
  1. TREMFYA [Suspect]
     Active Substance: GUSELKUMAB
     Indication: Colitis ulcerative
     Dosage: 200.00 MG / 2.00 ML
     Route: 065
  2. TREMFYA [Suspect]
     Active Substance: GUSELKUMAB

REACTIONS (3)
  - Wrong technique in product usage process [Unknown]
  - Syringe issue [Unknown]
  - Product leakage [Unknown]

NARRATIVE: CASE EVENT DATE: 20251015
